FAERS Safety Report 24034729 (Version 2)
Quarter: 2024Q3

REPORT INFORMATION
  Report Type: Report from Study
  Country: US (occurrence: US)
  Receive Date: 20240701
  Receipt Date: 20240710
  Transmission Date: 20241016
  Serious: No
  Sender: ROCHE
  Company Number: US-ROCHE-3564109

PATIENT
  Age: 31 Year
  Sex: Female

DRUGS (1)
  1. EVRYSDI [Suspect]
     Active Substance: RISDIPLAM
     Indication: Spinal muscular atrophy
     Dosage: DOSE: 75
     Route: 065
     Dates: start: 20210125, end: 20220125

REACTIONS (1)
  - Muscular weakness [Not Recovered/Not Resolved]
